FAERS Safety Report 21273154 (Version 3)
Quarter: 2022Q4

REPORT INFORMATION
  Report Type: Spontaneous
  Country: GR (occurrence: GR)
  Receive Date: 20220831
  Receipt Date: 20221011
  Transmission Date: 20230113
  Serious: Yes (Hospitalization)
  Sender: FDA-Public Use
  Company Number: GR-NOVARTISPH-PHHY2018GR154435

PATIENT
  Age: 69 Year
  Sex: Female
  Weight: 98 kg

DRUGS (41)
  1. TYKERB [Suspect]
     Active Substance: LAPATINIB DITOSYLATE
     Indication: Breast cancer
     Dosage: 1250 MG, QD
     Route: 048
     Dates: start: 20180611, end: 20180611
  2. TYKERB [Suspect]
     Active Substance: LAPATINIB DITOSYLATE
     Indication: HER2 positive breast cancer
     Dosage: 1250 MG, QD, (MOST RECENT DOSE PRIOR TO THE EVENT: 14/NOV/2018)
     Route: 048
     Dates: start: 20180618, end: 20180709
  3. TYKERB [Suspect]
     Active Substance: LAPATINIB DITOSYLATE
     Dosage: 1000 MG, QD
     Route: 048
     Dates: start: 20180723, end: 20181113
  4. LAPATINIB [Suspect]
     Active Substance: LAPATINIB
     Indication: HER2 positive breast cancer
     Dosage: 1250 MG, QD (SOLUTION FOR INFUSION)
     Route: 042
     Dates: start: 20180611
  5. LAPATINIB [Suspect]
     Active Substance: LAPATINIB
     Dosage: 1250 MG, QD (TABLET) (MOST RECENT DOSE PRIOR TO THE EVENT: 14 NOV 2018)
     Route: 048
     Dates: start: 20180618, end: 20180709
  6. LAPATINIB [Suspect]
     Active Substance: LAPATINIB
     Dosage: 1250 MG, QD
     Route: 042
     Dates: start: 20180619, end: 20180709
  7. LAPATINIB [Suspect]
     Active Substance: LAPATINIB
     Dosage: 1000 MG, QD
     Route: 048
     Dates: start: 20180723, end: 20181113
  8. LAPATINIB [Suspect]
     Active Substance: LAPATINIB
     Dosage: 750 MG, QD
     Route: 048
     Dates: start: 20181114, end: 20190503
  9. CAPECITABINE [Suspect]
     Active Substance: CAPECITABINE
     Indication: Breast cancer
     Dosage: 2000 MG, QD (MOST RECENT DOSE PRIOR TO THE EVENT ON 22/OCT/2018)
     Route: 042
     Dates: start: 20180618, end: 20180709
  10. CAPECITABINE [Suspect]
     Active Substance: CAPECITABINE
     Indication: HER2 positive breast cancer
     Dosage: 1500 MG
     Route: 042
     Dates: start: 20180723, end: 20181012
  11. CAPECITABINE [Suspect]
     Active Substance: CAPECITABINE
     Dosage: 1000 MG (MOST RECENT DOSE PRIOR TO THE EVENT ON 22/OCT/2018)
     Route: 042
     Dates: start: 20181022, end: 20190102
  12. PERTUZUMAB [Suspect]
     Active Substance: PERTUZUMAB
     Indication: Breast cancer
     Dosage: 840 MG/KG, Q3W (MOST RECENT DOSE PRIOR TO THE EVENT: 20161212)
     Route: 042
     Dates: start: 20161018
  13. PERTUZUMAB [Suspect]
     Active Substance: PERTUZUMAB
     Indication: HER2 positive breast cancer
     Dosage: 840 MG/KG, TIW (MOST RECENT DOSE PRIOR TO THE EVENT:12/DEC/2016)
     Route: 042
     Dates: start: 20161117, end: 20161117
  14. ADO-TRASTUZUMAB EMTANSINE [Suspect]
     Active Substance: ADO-TRASTUZUMAB EMTANSINE
     Indication: Breast cancer
     Dosage: 270 MG, Q3W
     Route: 048
     Dates: start: 20170726, end: 20180504
  15. ADO-TRASTUZUMAB EMTANSINE [Suspect]
     Active Substance: ADO-TRASTUZUMAB EMTANSINE
     Indication: HER2 positive breast cancer
  16. TRASTUZUMAB [Suspect]
     Active Substance: TRASTUZUMAB
     Indication: Breast cancer
     Dosage: 8 MG/KG, Q3W (SOLUTION FOR INFUSION)
     Route: 042
     Dates: start: 20161018
  17. TRASTUZUMAB [Suspect]
     Active Substance: TRASTUZUMAB
     Indication: HER2 positive breast cancer
     Dosage: 780 MG, TIW (SOLUTION FOR INFUSION) (MOST RECENT DOSE PRIOR TO THE EVENT:17/NOV/2016 AND 10/MAY/2019
     Route: 042
     Dates: start: 20161025, end: 20161025
  18. TRASTUZUMAB [Suspect]
     Active Substance: TRASTUZUMAB
     Dosage: 570 MG, TIW (TABLET)
     Route: 048
     Dates: start: 20161117, end: 20170705
  19. TAXOTERE [Suspect]
     Active Substance: DOCETAXEL
     Indication: Breast cancer
     Dosage: 75 MG/KG, Q3W
     Route: 042
     Dates: start: 20161018, end: 20170404
  20. DOCETAXEL [Suspect]
     Active Substance: DOCETAXEL
     Indication: HER2 positive breast cancer
     Dosage: 75 MG/KG, TIW
     Route: 042
     Dates: start: 20161018
  21. DOCETAXEL [Suspect]
     Active Substance: DOCETAXEL
     Dosage: 160 MG, TIW (MOST RECENT DOSE PRIOR TO THE EVENT: 17/NOV/2016)
     Route: 042
     Dates: start: 20161025, end: 20161025
  22. GEMCITABINE [Suspect]
     Active Substance: GEMCITABINE
     Indication: HER2 positive breast cancer
     Dosage: 2000 MG
     Route: 048
     Dates: start: 20190510, end: 20190703
  23. GEMCITABINE [Suspect]
     Active Substance: GEMCITABINE
     Dosage: 1500 MG
     Route: 048
     Dates: start: 20190724, end: 20190821
  24. GEMCITABINE [Suspect]
     Active Substance: GEMCITABINE
     Dosage: 750 MG (D1,D8)
     Route: 042
     Dates: start: 20190828, end: 20190828
  25. ZOMETA [Concomitant]
     Active Substance: ZOLEDRONIC ACID
     Indication: Product used for unknown indication
     Dosage: UNK
     Route: 065
     Dates: start: 20161018, end: 20190605
  26. ACETAMINOPHEN\CODEINE PHOSPHATE [Concomitant]
     Active Substance: ACETAMINOPHEN\CODEINE PHOSPHATE
     Indication: Product used for unknown indication
     Dosage: UNK
     Route: 065
  27. CALCIUM CARBONATE\CHOLECALCIFEROL [Concomitant]
     Active Substance: CALCIUM CARBONATE\CHOLECALCIFEROL
     Indication: Product used for unknown indication
     Dosage: UNK
     Route: 065
  28. CALCIUM CARBONATE\CHOLECALCIFEROL [Concomitant]
     Active Substance: CALCIUM CARBONATE\CHOLECALCIFEROL
     Dosage: UNK
     Route: 065
     Dates: start: 20171218, end: 20190605
  29. LEVOTHYROXINE [Concomitant]
     Active Substance: LEVOTHYROXINE
     Indication: Product used for unknown indication
     Dosage: UNK
     Route: 065
     Dates: start: 20090615
  30. LEVOTHYROXINE [Concomitant]
     Active Substance: LEVOTHYROXINE
     Dosage: UNK
     Route: 065
     Dates: start: 20090615
  31. FENTANYL [Concomitant]
     Active Substance: FENTANYL
     Indication: Product used for unknown indication
     Dosage: UNK
     Route: 065
     Dates: start: 20161015
  32. BILARGEN [Concomitant]
     Indication: Rash
     Dosage: UNK
     Route: 065
     Dates: start: 20180601, end: 20180625
  33. CIPROFLOXACIN [Concomitant]
     Active Substance: CIPROFLOXACIN
     Indication: Pyrexia
     Dosage: UNK
     Route: 065
     Dates: start: 20190503, end: 20190510
  34. CIPROFLOXACIN [Concomitant]
     Active Substance: CIPROFLOXACIN
     Dosage: UNK
     Route: 065
     Dates: start: 20190705, end: 20190709
  35. LOSEC [Concomitant]
     Active Substance: OMEPRAZOLE
     Indication: Product used for unknown indication
     Dosage: UNK
     Route: 065
     Dates: start: 20190703, end: 20190709
  36. TAZOLIN [Concomitant]
     Indication: Product used for unknown indication
     Dosage: UNK
     Route: 065
  37. STABILANOL [Concomitant]
     Indication: Onychomycosis
     Dosage: UNK
     Route: 065
     Dates: start: 20171218, end: 20180106
  38. STABILANOL [Concomitant]
     Dosage: UNK
     Route: 065
     Dates: start: 20180205, end: 20180224
  39. STABILANOL [Concomitant]
     Dosage: UNK
     Route: 065
     Dates: start: 20180225
  40. AUGMENTIN [Concomitant]
     Active Substance: AMOXICILLIN\CLAVULANATE POTASSIUM
     Indication: Product used for unknown indication
     Dosage: UNK
     Route: 065
  41. VANCOMYCIN HYDROCHLORIDE [Concomitant]
     Active Substance: VANCOMYCIN HYDROCHLORIDE
     Indication: Product used for unknown indication
     Dosage: UNK
     Route: 065
     Dates: start: 20190706, end: 20190709

REACTIONS (3)
  - Device related infection [Recovered/Resolved]
  - Platelet count decreased [Recovered/Resolved]
  - Peripheral sensory neuropathy [Recovered/Resolved]

NARRATIVE: CASE EVENT DATE: 20170517
